FAERS Safety Report 7606366-3 (Version None)
Quarter: 2011Q3

REPORT INFORMATION
  Report Type: 
  Country: None (occurrence: None)
  Receive Date: 20110705
  Receipt Date: 20110628
  Transmission Date: 20111222
  Serious: Yes (Other)
  Sender: FDA-Public Use
  Company Number: 2011SP003243

PATIENT
  Sex: Female

DRUGS (5)
  1. ZOLOFT [Concomitant]
  2. ATIVAN [Concomitant]
  3. COGENTIN [Concomitant]
  4. SAPHRIS [Suspect]
     Indication: SCHIZOPHRENIA
     Dosage: 5 MG;BID;SL
     Route: 060
     Dates: start: 20100312, end: 20110205
  5. SAPHRIS [Suspect]
     Indication: BIPOLAR DISORDER
     Dosage: 5 MG;BID;SL
     Route: 060
     Dates: start: 20100312, end: 20110205

REACTIONS (6)
  - HEADACHE [None]
  - AGITATION [None]
  - RESTLESSNESS [None]
  - ANGER [None]
  - FEAR OF DISEASE [None]
  - OBSESSIVE THOUGHTS [None]
